FAERS Safety Report 8584649-0 (Version None)
Quarter: 2012Q3

REPORT INFORMATION
  Report Type: 
  Country: None (occurrence: None)
  Receive Date: 20120802
  Receipt Date: 20120802
  Transmission Date: 20120928
  Serious: Yes (Hospitalization)
  Sender: FDA-Public Use
  Company Number: None

PATIENT
  Age: 79 Year
  Sex: Male
  Weight: 69.5 kg

DRUGS (1)
  1. CAPECITABINE [Suspect]
     Indication: PANCREATIC CARCINOMA
     Dosage: 1500 MG BID PO
     Route: 048
     Dates: start: 20120605, end: 20120710

REACTIONS (8)
  - VOMITING [None]
  - HYPOKALAEMIA [None]
  - DEHYDRATION [None]
  - NAUSEA [None]
  - DIARRHOEA [None]
  - HYPOMAGNESAEMIA [None]
  - DECREASED APPETITE [None]
  - ABDOMINAL PAIN [None]
